FAERS Safety Report 24291576 (Version 1)
Quarter: 2024Q3

REPORT INFORMATION
  Report Type: Spontaneous
  Country: US (occurrence: None)
  Receive Date: 20240906
  Receipt Date: 20240906
  Transmission Date: 20241016
  Serious: No
  Sender: DOMPE FARMACEUTICI
  Company Number: US-FARMAPROD-202309-2830

PATIENT
  Sex: Male

DRUGS (19)
  1. OXERVATE [Suspect]
     Active Substance: CENEGERMIN-BKBJ
     Indication: Neurotrophic keratopathy
     Route: 047
     Dates: start: 20230913
  2. OXERVATE [Suspect]
     Active Substance: CENEGERMIN-BKBJ
  3. FLUTICASONE PROPIONATE [Concomitant]
     Active Substance: FLUTICASONE PROPIONATE
  4. ACETAMINOPHEN [Concomitant]
     Active Substance: ACETAMINOPHEN
  5. TYRVAYA [Concomitant]
     Active Substance: VARENICLINE TARTRATE
     Dosage: 0.03 / SPRAY
  6. XIIDRA [Concomitant]
     Active Substance: LIFITEGRAST
  7. VIAGRA [Concomitant]
     Active Substance: SILDENAFIL CITRATE
  8. ESZOPICLONE [Concomitant]
     Active Substance: ESZOPICLONE
  9. MELOXICAM [Concomitant]
     Active Substance: MELOXICAM
  10. AMLODIPINE BESYLATE [Concomitant]
     Active Substance: AMLODIPINE BESYLATE
  11. DORZOLAMIDE HYDROCHLORIDE [Concomitant]
     Active Substance: DORZOLAMIDE HYDROCHLORIDE
  12. CARVEDILOL [Concomitant]
     Active Substance: CARVEDILOL
  13. PANTOPRAZOLE SODIUM [Concomitant]
     Active Substance: PANTOPRAZOLE SODIUM
  14. CLONAZEPAM [Concomitant]
     Active Substance: CLONAZEPAM
  15. SEROQUEL XR [Concomitant]
     Active Substance: QUETIAPINE FUMARATE
     Dosage: FOR 24 HOURS
  16. DIVALPROEX SODIUM [Concomitant]
     Active Substance: DIVALPROEX SODIUM
     Dosage: EXTENDED RELEASE FOR 24 HOURS
  17. SYSTANE GEL [Concomitant]
  18. OYSTER SHELL CALCIUM-VITAMIN D [Concomitant]
  19. IVIZIA [Concomitant]
     Active Substance: POVIDONE

REACTIONS (4)
  - Eye pain [Unknown]
  - Accidental overdose [Unknown]
  - Ocular hyperaemia [Unknown]
  - Eye irritation [Unknown]
